FAERS Safety Report 9147232 (Version 2)
Quarter: 2013Q2

REPORT INFORMATION
  Report Type: Spontaneous
  Country: GB (occurrence: None)
  Receive Date: 20130213
  Receipt Date: 20130620
  Transmission Date: 20140414
  Serious: Yes (Death)
  Sender: FDA-Public Use
  Company Number: GER/UKI/13/0027868

PATIENT
  Age: 81 Year
  Sex: Male

DRUGS (12)
  1. AMLODIPINE (AMLODIPINE) [Suspect]
     Indication: HYPERTENSION
  2. EPREX [Suspect]
     Indication: ANAEMIA
     Dosage: 1 IN 1 WK
     Route: 042
  3. METOCLOPRAMIDE (METOCLOPRAMIDE) [Concomitant]
  4. ALLOPURINOL [Concomitant]
  5. ASPIRIN (ACETYLSALICYLIC ACID) [Concomitant]
  6. CEFALEXIN (CEFALIXIN) [Concomitant]
  7. CYPROTERONE (CYPROTERONE) [Concomitant]
  8. DEXAMETHASONE (DEXAMETHASONE) [Concomitant]
  9. FENTANYL (FENTANYL) [Concomitant]
  10. LANSOPRAZOLE (LANSOPRAZOLE) [Concomitant]
  11. PARACETAMOL (PARACETAMOL) [Concomitant]
  12. SEVELAMER (SEVELAMER) [Concomitant]

REACTIONS (5)
  - Pneumonia [None]
  - Oedema peripheral [None]
  - Pelvic pain [None]
  - Hypertension [None]
  - Blood sodium decreased [None]
